FAERS Safety Report 15774255 (Version 2)
Quarter: 2019Q1

REPORT INFORMATION
  Report Type: Spontaneous
  Country: US (occurrence: US)
  Receive Date: 20181229
  Receipt Date: 20190116
  Transmission Date: 20190417
  Serious: No
  Sender: FDA-Public Use
  Company Number: US-DSJP-DSU-2017-145193

PATIENT

DRUGS (3)
  1. AZOR [Suspect]
     Active Substance: AMLODIPINE BESYLATE\OLMESARTAN MEDOXOMIL
     Indication: PRODUCT USED FOR UNKNOWN INDICATION
     Dosage: 10-40MG, UNK
  2. AZOR [Suspect]
     Active Substance: AMLODIPINE BESYLATE\OLMESARTAN MEDOXOMIL
     Dosage: 5-40MG, UNK
  3. BENICAR [Suspect]
     Active Substance: OLMESARTAN MEDOXOMIL
     Indication: PRODUCT USED FOR UNKNOWN INDICATION
     Dosage: 40 MG, UNK
     Dates: start: 2002, end: 20110501

REACTIONS (9)
  - Hiatus hernia [Not Recovered/Not Resolved]
  - Oesophageal stenosis [Unknown]
  - Haemorrhoids [Unknown]
  - Gastritis erosive [Unknown]
  - Gastrooesophageal reflux disease [Not Recovered/Not Resolved]
  - Sprue-like enteropathy [Recovering/Resolving]
  - Irritable bowel syndrome [Not Recovered/Not Resolved]
  - Helicobacter test positive [Recovered/Resolved]
  - Barrett^s oesophagus [Unknown]

NARRATIVE: CASE EVENT DATE: 20040810
